FAERS Safety Report 16766892 (Version 1)
Quarter: 2019Q3

REPORT INFORMATION
  Report Type: Spontaneous
  Country: US (occurrence: US)
  Receive Date: 20190715
  Receipt Date: 20190715
  Transmission Date: 20191005
  Serious: No
  Sender: FDA-Public Use
  Company Number: None

PATIENT
  Age: 41 Year
  Sex: Male

DRUGS (1)
  1. IMATINIB MESYLATE 400MG [Suspect]
     Active Substance: IMATINIB MESYLATE
     Indication: COLON CANCER
     Route: 048
     Dates: start: 20190320

REACTIONS (3)
  - Myalgia [None]
  - Asthenia [None]
  - Fatigue [None]

NARRATIVE: CASE EVENT DATE: 20190601
